FAERS Safety Report 7047804-7 (Version None)
Quarter: 2010Q4

REPORT INFORMATION
  Report Type: 
  Country: None (occurrence: None)
  Receive Date: 20101015
  Receipt Date: 20101007
  Transmission Date: 20110411
  Serious: No
  Sender: FDA-Public Use
  Company Number: US-PFIZER INC-2006154047

PATIENT
  Sex: Female

DRUGS (4)
  1. LYRICA [Suspect]
     Indication: PAIN
     Dosage: 300 MG, UNK
     Route: 048
     Dates: start: 20060101, end: 20060101
  2. LYRICA [Suspect]
     Indication: PRURITUS
  3. LYRICA [Suspect]
     Indication: HERPES ZOSTER
  4. ACETYLSALICYLIC ACID [Concomitant]
     Dosage: UNK, DAILY

REACTIONS (1)
  - DRUG INEFFECTIVE [None]
